FAERS Safety Report 23549559 (Version 1)
Quarter: 2024Q1

REPORT INFORMATION
  Report Type: Spontaneous
  Country: US (occurrence: None)
  Receive Date: 20240220
  Receipt Date: 20240220
  Transmission Date: 20240409
  Serious: Yes (Disabling)
  Sender: FDA-Public Use
  Company Number: None

PATIENT
  Age: 93 Year
  Sex: Female
  Weight: 52.65 kg

DRUGS (11)
  1. HYDRALAZINE HYDROCHLORIDE [Suspect]
     Active Substance: HYDRALAZINE HYDROCHLORIDE
     Indication: Hypertension
     Dosage: 1 TABLET TWICE A DAY
     Dates: start: 20240215, end: 20240218
  2. LOSARTAN [Concomitant]
     Active Substance: LOSARTAN
  3. HYDRALAZINE [Concomitant]
     Active Substance: HYDRALAZINE HYDROCHLORIDE
  4. DEVICE [Concomitant]
     Active Substance: DEVICE
  5. VitaFusion Women^s Vitamins [Concomitant]
  6. LOSARTAN [Suspect]
     Active Substance: LOSARTAN
  7. NIFEDIPINE [Suspect]
     Active Substance: NIFEDIPINE
  8. IRBESARTAN [Suspect]
     Active Substance: IRBESARTAN
  9. SPIRONOLACTONE [Suspect]
     Active Substance: SPIRONOLACTONE
  10. CLONIDINE HYDROCHLORIDE [Suspect]
     Active Substance: CLONIDINE HYDROCHLORIDE
  11. DOXAZOSIN [Suspect]
     Active Substance: DOXAZOSIN MESYLATE

REACTIONS (10)
  - Dizziness [None]
  - Vision blurred [None]
  - Headache [None]
  - Anxiety [None]
  - Palpitations [None]
  - Dyspnoea [None]
  - Arthralgia [None]
  - Mental disorder [None]
  - Arthralgia [None]
  - Asthenia [None]

NARRATIVE: CASE EVENT DATE: 20240215
